FAERS Safety Report 19907096 (Version 1)
Quarter: 2021Q4

REPORT INFORMATION
  Report Type: Spontaneous
  Country: US (occurrence: US)
  Receive Date: 20211001
  Receipt Date: 20211001
  Transmission Date: 20220303
  Serious: No
  Sender: FDA-Public Use
  Company Number: None

PATIENT
  Age: 68 Year
  Sex: Female
  Weight: 60.75 kg

DRUGS (5)
  1. PEG-3350 AND ELECTROLYTES [Suspect]
     Active Substance: POLYETHYLENE GLYCOL 3350\POTASSIUM CHLORIDE\SODIUM BICARBONATE\SODIUM CHLORIDE\SODIUM SULFATE
     Indication: Colonoscopy
     Dosage: ?          QUANTITY:4 LITERS;
     Route: 048
     Dates: start: 20210929, end: 20210930
  2. METOPROLOL TARTRATE [Concomitant]
     Active Substance: METOPROLOL TARTRATE
  3. ATORVASTATIN [Concomitant]
     Active Substance: ATORVASTATIN
  4. FISH OIL [Concomitant]
     Active Substance: FISH OIL
  5. CALTRATE [Concomitant]
     Active Substance: CALCIUM CARBONATE

REACTIONS (5)
  - Anorectal discomfort [None]
  - Headache [None]
  - Rectal haemorrhage [None]
  - Haemorrhoids [None]
  - Intestinal atony [None]

NARRATIVE: CASE EVENT DATE: 20210929
